FAERS Safety Report 9794642 (Version 1)
Quarter: 2014Q1

REPORT INFORMATION
  Report Type: Spontaneous
  Country: FR (occurrence: FR)
  Receive Date: 20140102
  Receipt Date: 20140102
  Transmission Date: 20141002
  Serious: Yes (Hospitalization)
  Sender: FDA-Public Use
  Company Number: FR-GLAXOSMITHKLINE-B0955738A

PATIENT
  Age: 34 Year
  Sex: Female

DRUGS (10)
  1. ZOPHREN [Suspect]
     Indication: PREMEDICATION
     Route: 048
     Dates: start: 20130820, end: 20130821
  2. ONCOVIN [Suspect]
     Indication: GESTATIONAL TROPHOBLASTIC TUMOUR
     Dosage: 1.5MG CYCLIC
     Route: 042
     Dates: start: 20130715
  3. LARGACTIL [Suspect]
     Dosage: 25MG PER DAY
     Route: 042
     Dates: start: 20130819, end: 20130820
  4. ENDOXAN [Concomitant]
     Indication: GESTATIONAL TROPHOBLASTIC TUMOUR
     Dosage: 600MGM2 CYCLIC
     Route: 042
     Dates: start: 20130715
  5. NEOMERCAZOLE [Concomitant]
     Dosage: 20MG PER DAY
     Dates: start: 20130611
  6. AVLOCARDYL [Concomitant]
     Dosage: 40MG PER DAY
     Dates: start: 20130611
  7. ZOPICLONE [Concomitant]
     Dosage: 1UNIT PER DAY
     Dates: start: 20130610
  8. ETOPOSIDE [Concomitant]
     Indication: GESTATIONAL TROPHOBLASTIC TUMOUR
     Dosage: 100MGM2 CYCLIC
     Route: 042
  9. ACTINOMYCIN-D [Concomitant]
     Indication: GESTATIONAL TROPHOBLASTIC TUMOUR
     Dosage: .5MG CYCLIC
     Route: 042
     Dates: start: 20130710
  10. METHOTREXATE [Concomitant]
     Indication: GESTATIONAL TROPHOBLASTIC TUMOUR
     Route: 042
     Dates: start: 20130710

REACTIONS (4)
  - Small intestinal obstruction [Recovered/Resolved]
  - Abdominal pain [Recovered/Resolved]
  - Vomiting [Recovered/Resolved]
  - Constipation [Recovered/Resolved]
